FAERS Safety Report 15481922 (Version 1)
Quarter: 2018Q4

REPORT INFORMATION
  Report Type: Spontaneous
  Country: PT (occurrence: PT)
  Receive Date: 20181010
  Receipt Date: 20181010
  Transmission Date: 20190205
  Serious: Yes (Disabling)
  Sender: FDA-Public Use
  Company Number: PT-GLAXOSMITHKLINE-PT2018179804

PATIENT
  Sex: Male

DRUGS (1)
  1. ZOREF [Suspect]
     Active Substance: CEFUROXIME AXETIL
     Indication: PRODUCT USED FOR UNKNOWN INDICATION
     Dosage: 1 DF, QD
     Route: 065

REACTIONS (13)
  - Somnolence [Unknown]
  - Dyspepsia [Unknown]
  - Headache [Unknown]
  - Pharyngeal oedema [Unknown]
  - Aphonia [Unknown]
  - Dizziness [Unknown]
  - Decreased appetite [Unknown]
  - Rash pruritic [Unknown]
  - Dysphonia [Unknown]
  - Increased upper airway secretion [Unknown]
  - Abdominal pain [Unknown]
  - Burning sensation [Unknown]
  - Dyspnoea [Unknown]
